FAERS Safety Report 14723404 (Version 1)
Quarter: 2018Q2

REPORT INFORMATION
  Report Type: Other
  Country: IE (occurrence: IE)
  Receive Date: 20180405
  Receipt Date: 20180405
  Transmission Date: 20180711
  Serious: Yes (Other)
  Sender: FDA-Public Use
  Company Number: IE-SEATTLE GENETICS-2018SGN00817

PATIENT
  Age: 12 Year
  Sex: Male

DRUGS (1)
  1. ADCETRIS [Suspect]
     Active Substance: BRENTUXIMAB VEDOTIN
     Indication: HODGKIN^S DISEASE
     Dosage: 50 MG, UNK
     Route: 065

REACTIONS (1)
  - Pulmonary mass [Not Recovered/Not Resolved]
